FAERS Safety Report 14366087 (Version 5)
Quarter: 2018Q1

REPORT INFORMATION
  Report Type: Spontaneous
  Country: JP (occurrence: JP)
  Receive Date: 20180109
  Receipt Date: 20180321
  Transmission Date: 20180509
  Serious: Yes (Life-Threatening, Hospitalization, Other)
  Sender: FDA-Public Use
  Company Number: JP-ROCHE-2048535

PATIENT
  Age: 61 Year
  Sex: Female
  Weight: 45 kg

DRUGS (9)
  1. DEXART [Concomitant]
     Active Substance: DEXAMETHASONE SODIUM PHOSPHATE
     Route: 065
     Dates: start: 20170925, end: 20171128
  2. NAIXAN [Suspect]
     Active Substance: NAPROXEN SODIUM
     Indication: PRODUCT USED FOR UNKNOWN INDICATION
     Dosage: DOSE INTERVAL UNCERTAINTY
     Route: 048
     Dates: start: 20171108
  3. CARBOPLATIN. [Concomitant]
     Active Substance: CARBOPLATIN
     Indication: OVARIAN CANCER
     Dosage: DOSAGE IS UNCERTAIN.
     Route: 041
     Dates: start: 20170925, end: 20171128
  4. AVASTIN [Suspect]
     Active Substance: BEVACIZUMAB
     Indication: OVARIAN CANCER
     Route: 041
     Dates: start: 20170925, end: 20171128
  5. GRANISETRON [Concomitant]
     Active Substance: GRANISETRON
     Route: 065
     Dates: start: 20170925, end: 20171128
  6. NAIXAN [Suspect]
     Active Substance: NAPROXEN SODIUM
     Dosage: DOSE INTERVAL UNCERTAINTY
     Route: 048
  7. PACLITAXEL. [Concomitant]
     Active Substance: PACLITAXEL
     Indication: OVARIAN CANCER
     Dosage: DOSAGE IS UNCERTAIN.
     Route: 041
     Dates: start: 20170925, end: 20171128
  8. ZANTAC [Concomitant]
     Active Substance: RANITIDINE HYDROCHLORIDE
     Route: 065
     Dates: start: 20170925, end: 20171128
  9. PARIET [Concomitant]
     Active Substance: RABEPRAZOLE SODIUM
     Dosage: DOSAGE IS UNCERTAIN.
     Route: 048
     Dates: start: 20171108

REACTIONS (5)
  - Gastrointestinal haemorrhage [Recovered/Resolved]
  - Ureteric stenosis [Unknown]
  - Haematuria [Unknown]
  - Emphysematous cystitis [Recovered/Resolved]
  - Gastrointestinal erosion [Unknown]

NARRATIVE: CASE EVENT DATE: 20171130
